FAERS Safety Report 9478962 (Version 2)
Quarter: 2013Q3

REPORT INFORMATION
  Report Type: Spontaneous
  Country: BR (occurrence: BR)
  Receive Date: 20130827
  Receipt Date: 20130925
  Transmission Date: 20140515
  Serious: Yes (Other)
  Sender: FDA-Public Use
  Company Number: BR-PFIZER INC-2013246497

PATIENT
  Age: 75 Year
  Sex: Female
  Weight: 90 kg

DRUGS (2)
  1. LYRICA [Suspect]
     Indication: PAIN IN EXTREMITY
     Dosage: 75 MG (1 TABLET IN THE MORNING AND TWO TABLETS AT NIGHT)
     Route: 048
     Dates: start: 2011
  2. LYRICA [Suspect]
     Indication: SPINAL PAIN

REACTIONS (3)
  - Off label use [Unknown]
  - Arthropathy [Unknown]
  - Spinal disorder [Unknown]
